FAERS Safety Report 7963806-8 (Version None)
Quarter: 2011Q4

REPORT INFORMATION
  Report Type: 
  Country: None (occurrence: None)
  Receive Date: 20111208
  Receipt Date: 20111121
  Transmission Date: 20120403
  Serious: No
  Sender: FDA-Public Use
  Company Number: US-BAYER-2011-114012

PATIENT
  Age: 78 Year
  Sex: Female
  Weight: 63 kg

DRUGS (2)
  1. ALEVE (CAPLET) [Suspect]
     Dosage: 1 U, PRN
     Route: 048
     Dates: start: 20111001
  2. NEXIUM [Concomitant]

REACTIONS (1)
  - SOMNOLENCE [None]
